FAERS Safety Report 6960834-6 (Version None)
Quarter: 2010Q3

REPORT INFORMATION
  Report Type: 
  Country: None (occurrence: None)
  Receive Date: 20100830
  Receipt Date: 20100811
  Transmission Date: 20110219
  Serious: Yes (Hospitalization)
  Sender: FDA-Public Use
  Company Number: APP201000650

PATIENT
  Age: 21 Month
  Sex: Female

DRUGS (1)
  1. PENTAM [Suspect]
     Indication: PRODUCT USED FOR UNKNOWN INDICATION
     Dosage: 45 MG ONCE, INTRAVENOUS
     Route: 042
     Dates: start: 20100730, end: 20100730

REACTIONS (4)
  - CHEST DISCOMFORT [None]
  - RESPIRATORY DISTRESS [None]
  - TACHYCARDIA [None]
  - WHEEZING [None]
